FAERS Safety Report 20456523 (Version 2)
Quarter: 2022Q1

REPORT INFORMATION
  Report Type: Report from Study
  Country: IN (occurrence: IN)
  Receive Date: 20220210
  Receipt Date: 20220224
  Transmission Date: 20220423
  Serious: Yes (Death, Other)
  Sender: FDA-Public Use
  Company Number: IN-BRISTOL-MYERS SQUIBB COMPANY-BMS-2022-018647

PATIENT
  Age: 43 Year
  Sex: Male
  Weight: 66 kg

DRUGS (3)
  1. NIVOLUMAB [Suspect]
     Active Substance: NIVOLUMAB
     Indication: Squamous cell carcinoma of head and neck
     Dosage: 198 MILLIGRAM, Q2WK
     Route: 042
     Dates: start: 20211229, end: 20220109
  2. NEUGABA M [Concomitant]
     Indication: Pain
     Dosage: 75 MG HS
     Route: 048
     Dates: start: 20211229
  3. MORPHINE [Concomitant]
     Active Substance: MORPHINE
     Indication: Pain
     Dosage: 10 MG TDS
     Route: 048
     Dates: start: 20211229

REACTIONS (1)
  - Malignant neoplasm progression [Fatal]
